FAERS Safety Report 6230265-5 (Version None)
Quarter: 2009Q2

REPORT INFORMATION
  Report Type: 
  Country: None (occurrence: None)
  Receive Date: 20090615
  Receipt Date: 20090526
  Transmission Date: 20091009
  Serious: Yes (Other)
  Sender: FDA-Public Use
  Company Number: IE-B.I. PHARMACEUTICALS,INC./RIDGEFIELD-2009-UK-00223UK

PATIENT
  Sex: Male

DRUGS (13)
  1. MICARDIS HCT [Suspect]
     Indication: HYPERTENSION
     Dosage: 80/12.5 MG
     Route: 048
  2. DIFENE [Suspect]
     Indication: BACK PAIN
     Dosage: 150MG
     Route: 048
     Dates: start: 20081201
  3. ATENOLOL [Concomitant]
     Dosage: 50 MG BD
  4. NEO-MERCAZOLE TAB [Concomitant]
     Dosage: 5MG
  5. LIPITOR [Concomitant]
     Dosage: 10MG
  6. LOSEC [Concomitant]
     Dosage: 40MG
  7. OMACOR [Concomitant]
     Dosage: ONCE DAILY
  8. TRAMADOL HCL [Concomitant]
     Dosage: 100MG
  9. XANAX [Concomitant]
     Dosage: .25MG
  10. SOLPADENE [Concomitant]
     Dosage: TWICE DAILY
  11. OMSIL [Concomitant]
     Dosage: 400MCG
  12. TOVIAZ [Concomitant]
     Dosage: 8MG
  13. NUREAL [Concomitant]
     Dosage: 75MG

REACTIONS (2)
  - BLOOD PRESSURE INCREASED [None]
  - DRUG INEFFECTIVE [None]
